FAERS Safety Report 5085138-0 (Version None)
Quarter: 2006Q3

REPORT INFORMATION
  Report Type: 
  Country: None (occurrence: None)
  Receive Date: 20060816
  Receipt Date: 20050829
  Transmission Date: 20061208
  Serious: Yes (Other)
  Sender: FDA-Public Use
  Company Number: 2006RR-03077

PATIENT
  Age: 80 Year
  Sex: Male

DRUGS (1)
  1. LISINOPRIL [Suspect]
     Dosage: 20 MG, ORAL
     Route: 048
     Dates: start: 20050210

REACTIONS (3)
  - CLUSTER HEADACHE [None]
  - GASTRITIS [None]
  - INSOMNIA [None]
